FAERS Safety Report 8760284 (Version 2)
Quarter: 2013Q4

REPORT INFORMATION
  Report Type: Spontaneous
  Country: US (occurrence: US)
  Receive Date: 20120830
  Receipt Date: 20131003
  Transmission Date: 20140711
  Serious: No
  Sender: FDA-Public Use
  Company Number: US-009507513-1208USA008692

PATIENT
  Age: 60 Year
  Sex: Male

DRUGS (2)
  1. MAXALT [Suspect]
     Dosage: UNK, PRN
     Route: 048
  2. MAXALT [Suspect]
     Dosage: UNK, PRN
     Route: 048

REACTIONS (1)
  - Visual acuity reduced [Recovered/Resolved]
